FAERS Safety Report 5660067-X (Version None)
Quarter: 2008Q1

REPORT INFORMATION
  Report Type: 
  Country: None (occurrence: None)
  Receive Date: 20080311
  Receipt Date: 20070906
  Transmission Date: 20080703
  Serious: Yes (Other)
  Sender: FDA-Public Use
  Company Number: US-BAYER-200712861BCC

PATIENT
  Sex: Female
  Weight: 75 kg

DRUGS (4)
  1. ALEVE [Suspect]
     Indication: DRUG USE FOR UNKNOWN INDICATION
     Route: 048
     Dates: start: 19980101
  2. NEXIUM [Concomitant]
  3. ACTONEL [Concomitant]
  4. LORAZEPAM [Concomitant]

REACTIONS (1)
  - ULCER [None]
